FAERS Safety Report 11653592 (Version 1)
Quarter: 2015Q4

REPORT INFORMATION
  Report Type: Spontaneous
  Country: JP (occurrence: JP)
  Receive Date: 20151022
  Receipt Date: 20151022
  Transmission Date: 20160304
  Serious: Yes (Other)
  Sender: FDA-Public Use
  Company Number: JP-BRISTOL-MYERS SQUIBB COMPANY-BMS-2015-054947

PATIENT
  Age: 76 Year
  Sex: Female

DRUGS (2)
  1. SUNVEPRA [Suspect]
     Active Substance: ASUNAPREVIR
     Indication: CHRONIC HEPATITIS C
     Dosage: 100 MG, BID
     Route: 048
     Dates: start: 201505, end: 20150807
  2. DAKLINZA [Suspect]
     Active Substance: DACLATASVIR
     Indication: CHRONIC HEPATITIS C
     Dosage: 60 MG, QD
     Route: 048
     Dates: start: 201505, end: 20150807

REACTIONS (5)
  - Hepatic function abnormal [Recovered/Resolved]
  - Eosinophil count increased [Unknown]
  - Erythema multiforme [Recovering/Resolving]
  - Off label use [Unknown]
  - Nail hypertrophy [Recovered/Resolved]

NARRATIVE: CASE EVENT DATE: 20150807
